FAERS Safety Report 10183300 (Version 2)
Quarter: 2014Q2

REPORT INFORMATION
  Report Type: Spontaneous
  Country: US (occurrence: US)
  Receive Date: 20140520
  Receipt Date: 20140528
  Transmission Date: 20141212
  Serious: No
  Sender: FDA-Public Use
  Company Number: US-009507513-1405USA007407

PATIENT
  Sex: 0

DRUGS (2)
  1. REBETOL [Suspect]
     Indication: RESPIRATORY SYNCYTIAL VIRUS INFECTION
     Dosage: 600-800 MG TWICE DAILY, FOR 5-10 DAYS
     Route: 048
  2. GLOBULIN, IMMUNE [Suspect]
     Indication: RESPIRATORY SYNCYTIAL VIRUS INFECTION

REACTIONS (1)
  - Respiratory tract infection [Unknown]
